FAERS Safety Report 9464664 (Version 2)
Quarter: 2013Q4

REPORT INFORMATION
  Report Type: Spontaneous
  Country: DE (occurrence: DE)
  Receive Date: 20130819
  Receipt Date: 20131121
  Transmission Date: 20140711
  Serious: Yes (Other)
  Sender: FDA-Public Use
  Company Number: DE-B.I. PHARMACEUTICALS,INC./RIDGEFIELD-2013-BI-24364DE

PATIENT
  Age: 48 Year
  Sex: Male

DRUGS (3)
  1. PRAMIPEXOLE [Suspect]
     Indication: PARKINSON^S DISEASE
     Dosage: 1.57 MG
     Route: 048
     Dates: start: 201204, end: 20130423
  2. PRAMIPEXOLE [Suspect]
     Indication: PARKINSON^S DISEASE
  3. AZILECT [Concomitant]
     Indication: PARKINSON^S DISEASE
     Route: 048
     Dates: start: 201204, end: 20130423

REACTIONS (5)
  - Dyspnoea [Recovered/Resolved]
  - Oedema peripheral [Recovered/Resolved]
  - Right ventricular failure [Recovered/Resolved]
  - Cardiotoxicity [Unknown]
  - Treatment failure [Unknown]
